FAERS Safety Report 14935926 (Version 1)
Quarter: 2018Q2

REPORT INFORMATION
  Report Type: Spontaneous
  Country: FR (occurrence: FR)
  Receive Date: 20180524
  Receipt Date: 20180524
  Transmission Date: 20180711
  Serious: Yes (Life-Threatening, Other)
  Sender: FDA-Public Use
  Company Number: FR-GLAXOSMITHKLINE-FR2018090793

PATIENT
  Age: 39 Year
  Sex: Female
  Weight: 82 kg

DRUGS (6)
  1. ZINNAT [Suspect]
     Active Substance: CEFUROXIME AXETIL
     Indication: INFECTION PROPHYLAXIS
     Dosage: 1.5 G, UNK
     Route: 041
  2. BUPIVACAINE. [Suspect]
     Active Substance: BUPIVACAINE
     Indication: SPINAL ANAESTHESIA
     Dosage: 10 MG, UNK
     Route: 024
  3. AZANTAC [Suspect]
     Active Substance: RANITIDINE HYDROCHLORIDE
     Indication: ANAESTHETIC PREMEDICATION
     Dosage: 150 MG, UNK
     Route: 048
  4. SUFENTANIL [Suspect]
     Active Substance: SUFENTANIL
     Indication: SPINAL ANAESTHESIA
     Dosage: 5 MG, UNK
     Route: 024
  5. MORPHINE [Suspect]
     Active Substance: MORPHINE
     Indication: SPINAL ANAESTHESIA
     Dosage: 100 ?G, UNK
     Route: 024
  6. PABAL [Suspect]
     Active Substance: CARBETOCIN
     Indication: UTERINE ATONY
     Dosage: 100 ?G/ML
     Route: 042

REACTIONS (1)
  - Anaphylactic shock [Recovered/Resolved]

NARRATIVE: CASE EVENT DATE: 20160125
